FAERS Safety Report 16374129 (Version 2)
Quarter: 2019Q3

REPORT INFORMATION
  Report Type: Report from Study
  Country: US (occurrence: US)
  Receive Date: 20190530
  Receipt Date: 20190719
  Transmission Date: 20191004
  Serious: Yes (Other)
  Sender: FDA-Public Use
  Company Number: US-TEVA-2019-US-1055736

PATIENT
  Sex: Female

DRUGS (4)
  1. SARACATINIB [Suspect]
     Active Substance: SARACATINIB
     Indication: POSTMENOPAUSE
  2. ANASTROZOLE. [Suspect]
     Active Substance: ANASTROZOLE
     Indication: OESTROGEN RECEPTOR POSITIVE BREAST CANCER
     Route: 065
  3. SARACATINIB [Suspect]
     Active Substance: SARACATINIB
     Indication: OESTROGEN RECEPTOR POSITIVE BREAST CANCER
     Route: 065
  4. ANASTROZOLE. [Suspect]
     Active Substance: ANASTROZOLE
     Indication: POSTMENOPAUSE

REACTIONS (1)
  - Anaemia [Unknown]
